FAERS Safety Report 9172166 (Version 3)
Quarter: 2013Q2

REPORT INFORMATION
  Report Type: Spontaneous
  Country: US (occurrence: US)
  Receive Date: 20130319
  Receipt Date: 20130503
  Transmission Date: 20140414
  Serious: Yes (Other)
  Sender: FDA-Public Use
  Company Number: US-PFIZER INC-2013085327

PATIENT
  Age: 55 Year
  Sex: Female

DRUGS (7)
  1. EFFEXOR XR [Suspect]
     Dosage: 225MG (150MG AND 75MG), 1X/DAY
  2. CELEBREX [Suspect]
     Dosage: 200 MG, 1X/DAY
     Route: 048
  3. LISINOPRIL [Concomitant]
     Dosage: UNK, DAILY
  4. LEVEMIR INSULIN [Concomitant]
     Dosage: UNK, DAILY
  5. NOVOLOG [Concomitant]
     Dosage: UNK, 1X/DAY
  6. CARVEDILOL [Concomitant]
     Dosage: UNK, 1X/DAY
  7. RISPERDAL [Concomitant]
     Dosage: 1 MG, 1X/DAY

REACTIONS (6)
  - Cerebrovascular accident [Unknown]
  - Rheumatoid arthritis [Unknown]
  - Diabetes mellitus [Unknown]
  - Hypertension [Unknown]
  - Insomnia [Unknown]
  - Gastrointestinal disorder [Unknown]
